FAERS Safety Report 25031845 (Version 1)
Quarter: 2025Q1

REPORT INFORMATION
  Report Type: Spontaneous
  Country: US (occurrence: US)
  Receive Date: 20250303
  Receipt Date: 20250303
  Transmission Date: 20250409
  Serious: No
  Sender: GILEAD
  Company Number: US-GILEAD-2025-0705819

PATIENT
  Age: 53 Year
  Sex: Female

DRUGS (1)
  1. EPCLUSA [Suspect]
     Active Substance: SOFOSBUVIR\VELPATASVIR
     Indication: Hepatitis C virus test positive
     Route: 065

REACTIONS (3)
  - Abdominal pain [Unknown]
  - Constipation [Unknown]
  - Product use issue [Not Recovered/Not Resolved]
